FAERS Safety Report 19613632 (Version 1)
Quarter: 2021Q3

REPORT INFORMATION
  Report Type: Spontaneous
  Country: US (occurrence: US)
  Receive Date: 20210727
  Receipt Date: 20210727
  Transmission Date: 20211014
  Serious: No
  Sender: FDA-Public Use
  Company Number: US-BAYER-2021-182620

PATIENT
  Age: 3 Year
  Sex: Male

DRUGS (2)
  1. CLARITIN [Suspect]
     Active Substance: LORATADINE
     Indication: HYPERSENSITIVITY
     Dosage: 2 DF, ONCE
     Route: 048
     Dates: end: 20210726
  2. CLARITIN [Suspect]
     Active Substance: LORATADINE
     Indication: NASOPHARYNGITIS
     Dosage: UNK UNK, ONCE
     Route: 048
     Dates: start: 202104

REACTIONS (1)
  - Accidental exposure to product by child [Unknown]

NARRATIVE: CASE EVENT DATE: 20210726
